FAERS Safety Report 13344965 (Version 3)
Quarter: 2017Q2

REPORT INFORMATION
  Report Type: Spontaneous
  Country: US (occurrence: US)
  Receive Date: 20170317
  Receipt Date: 20170522
  Transmission Date: 20170830
  Serious: No
  Sender: FDA-Public Use
  Company Number: US-PFIZER INC-2017107353

PATIENT
  Age: 76 Year
  Sex: Female

DRUGS (1)
  1. IBRANCE [Suspect]
     Active Substance: PALBOCICLIB
     Indication: BREAST CANCER
     Dosage: 125 MG, CYCLIC [ QD X 21 D THEN 7 DAYS OFF] (DAILY FOR 21 DAYS ON, 7 DAYS OFF THEN REPEAT)
     Route: 048
     Dates: start: 20170511

REACTIONS (6)
  - Muscular weakness [Unknown]
  - Fatigue [Unknown]
  - Abdominal discomfort [Unknown]
  - Influenza like illness [Recovered/Resolved]
  - Abdominal distension [Unknown]
  - Lethargy [Unknown]
